FAERS Safety Report 17496052 (Version 2)
Quarter: 2020Q1

REPORT INFORMATION
  Report Type: Spontaneous
  Country: US (occurrence: US)
  Receive Date: 20200304
  Receipt Date: 20200320
  Transmission Date: 20200409
  Serious: Yes (Hospitalization, Other)
  Sender: FDA-Public Use
  Company Number: US-HIKMA PHARMACEUTICALS USA INC.-US-H14001-20-50688

PATIENT
  Age: 63 Year
  Sex: Female
  Weight: 53.1 kg

DRUGS (1)
  1. HEPARIN [Suspect]
     Active Substance: HEPARIN SODIUM
     Indication: THROMBOSIS PROPHYLAXIS
     Route: 058

REACTIONS (5)
  - Adrenomegaly [Unknown]
  - Adrenal insufficiency [Unknown]
  - Heparin-induced thrombocytopenia [Recovered/Resolved with Sequelae]
  - Adrenal haemorrhage [Recovered/Resolved with Sequelae]
  - Venous thrombosis [Unknown]
